FAERS Safety Report 22384981 (Version 3)
Quarter: 2023Q4

REPORT INFORMATION
  Report Type: Report from Study
  Country: US (occurrence: US)
  Receive Date: 20230530
  Receipt Date: 20231127
  Transmission Date: 20240110
  Serious: No
  Sender: FDA-Public Use
  Company Number: US-KOREA IPSEN Pharma-2022-32957

PATIENT
  Age: 35 Year
  Sex: Male
  Weight: 81.647 kg

DRUGS (2)
  1. SOMATULINE DEPOT [Suspect]
     Active Substance: LANREOTIDE ACETATE
     Indication: Acromegaly
     Route: 058
     Dates: start: 202012
  2. SOMATULINE DEPOT [Suspect]
     Active Substance: LANREOTIDE ACETATE
     Dosage: 120 MG, EVERY 4 WEEKS
     Route: 058
     Dates: start: 20220211

REACTIONS (12)
  - Intra-abdominal fluid collection [Recovering/Resolving]
  - Injection site nodule [Not Recovered/Not Resolved]
  - Weight decreased [Not Recovered/Not Resolved]
  - Abdominal pain [Recovering/Resolving]
  - Presyncope [Recovering/Resolving]
  - Weight decreased [Recovering/Resolving]
  - Blood bilirubin increased [Recovering/Resolving]
  - Polyp [Recovering/Resolving]
  - Abdominal distension [Recovering/Resolving]
  - Abdominal pain [Recovered/Resolved]
  - Injection site nodule [Recovering/Resolving]
  - Insulin-like growth factor increased [Not Recovered/Not Resolved]

NARRATIVE: CASE EVENT DATE: 20220101
